FAERS Safety Report 9315353 (Version 3)
Quarter: 2014Q1

REPORT INFORMATION
  Report Type: Spontaneous
  Country: US (occurrence: US)
  Receive Date: 20130529
  Receipt Date: 20140221
  Transmission Date: 20141002
  Serious: Yes (Death, Hospitalization)
  Sender: FDA-Public Use
  Company Number: US-B.I. PHARMACEUTICALS,INC./RIDGEFIELD-2013-BI-14861BP

PATIENT
  Sex: Male
  Weight: 84.82 kg

DRUGS (11)
  1. PRADAXA [Suspect]
     Indication: ANTICOAGULANT THERAPY
     Dosage: 300 MG
     Route: 048
     Dates: start: 20111119, end: 20120321
  2. PRADAXA [Suspect]
     Indication: CARDIOVASCULAR EVENT PROPHYLAXIS
  3. PRADAXA [Suspect]
     Indication: ATRIAL FIBRILLATION
  4. METOPROLOL [Concomitant]
     Indication: HEART RATE IRREGULAR
  5. AMIODARONE [Concomitant]
     Indication: HEART RATE IRREGULAR
  6. ATORVASTATIN [Concomitant]
     Indication: HYPERLIPIDAEMIA
  7. BAYER ASPIRIN [Concomitant]
  8. ZETIA [Concomitant]
     Indication: HYPERLIPIDAEMIA
  9. BENAZEPRIL [Concomitant]
     Indication: HYPERTENSION
  10. AMPICILLIN [Concomitant]
  11. GENTAMICIN [Concomitant]

REACTIONS (1)
  - Cerebellar haemorrhage [Fatal]
